FAERS Safety Report 8988282 (Version 1)
Quarter: 2012Q4

REPORT INFORMATION
  Report Type: Report from Study
  Country: FR (occurrence: FR)
  Receive Date: 20121227
  Receipt Date: 20121227
  Transmission Date: 20130627
  Serious: Yes (Hospitalization)
  Sender: FDA-Public Use
  Company Number: FR-CELGENEUS-056-50794-12121811

PATIENT
  Age: 66 Year
  Sex: Male
  Weight: 64 kg

DRUGS (1)
  1. VIDAZA [Suspect]
     Indication: RAEB
     Dosage: 130 milligram/sq. meter
     Route: 058
     Dates: start: 20121129

REACTIONS (1)
  - Rectal haemorrhage [Not Recovered/Not Resolved]
